FAERS Safety Report 8582619-X (Version None)
Quarter: 2012Q3

REPORT INFORMATION
  Report Type: 
  Country: None (occurrence: None)
  Receive Date: 20120809
  Receipt Date: 20120803
  Transmission Date: 20120928
  Serious: Yes (Other)
  Sender: FDA-Public Use
  Company Number: AU-ROCHE-1098638

PATIENT
  Sex: Male

DRUGS (10)
  1. FISH OIL [Concomitant]
  2. METHOTREXATE [Concomitant]
     Route: 058
  3. VITAMIN D [Concomitant]
  4. LEFLUNOMIDE [Concomitant]
     Indication: RHEUMATOID ARTHRITIS
     Route: 048
  5. ACTEMRA [Suspect]
     Indication: RHEUMATOID ARTHRITIS
     Route: 042
     Dates: start: 20101008
  6. LEUCOVORIN CALCIUM [Concomitant]
     Route: 048
  7. PREDNISOLONE [Concomitant]
     Dosage: DOSE: 12-25 MG
  8. ACETAMINOPHEN [Concomitant]
  9. VITAMIN E [Concomitant]
  10. MILK THISTLE [Concomitant]

REACTIONS (2)
  - DISORIENTATION [None]
  - EUPHORIC MOOD [None]
